FAERS Safety Report 26187417 (Version 1)
Quarter: 2025Q4

REPORT INFORMATION
  Report Type: Spontaneous
  Country: GB (occurrence: GB)
  Receive Date: 20251222
  Receipt Date: 20251222
  Transmission Date: 20260117
  Serious: Yes (Other)
  Sender: AMGEN
  Company Number: GB-AMGEN-GBRSP2025251838

PATIENT
  Age: 57 Year
  Sex: Female

DRUGS (2)
  1. APREMILAST [Suspect]
     Active Substance: APREMILAST
     Indication: Crohn^s disease
     Dosage: UNK
     Route: 065
     Dates: start: 2019
  2. APREMILAST [Suspect]
     Active Substance: APREMILAST
     Indication: Arthritis

REACTIONS (3)
  - Colitis [Unknown]
  - Drug ineffective [Unknown]
  - Off label use [Unknown]

NARRATIVE: CASE EVENT DATE: 20190101
